FAERS Safety Report 20946554 (Version 1)
Quarter: 2022Q2

REPORT INFORMATION
  Report Type: Spontaneous
  Country: US (occurrence: None)
  Receive Date: 20220610
  Receipt Date: 20220610
  Transmission Date: 20220721
  Serious: No
  Sender: FDA-Public Use
  Company Number: None

PATIENT
  Age: 26 Year
  Sex: Female

DRUGS (11)
  1. EPIDIOLEX [Suspect]
     Active Substance: CANNABIDIOL
     Dosage: FREQUENCY : TWICE A DAY;?
     Route: 048
  2. LAMOTRIGINE [Concomitant]
     Active Substance: LAMOTRIGINE
  3. LAMOTRIGINE [Concomitant]
     Active Substance: LAMOTRIGINE
  4. LEVOCETIRIZINE [Suspect]
     Active Substance: LEVOCETIRIZINE
  5. MAGNESIUM [Concomitant]
     Active Substance: MAGNESIUM
  6. MODAFINIL [Concomitant]
     Active Substance: MODAFINIL
  7. MONTELUKAST [Concomitant]
     Active Substance: MONTELUKAST SODIUM
  8. MULTIVITAMIN [Concomitant]
  9. TOPIRAMATE [Concomitant]
     Active Substance: TOPIRAMATE
  10. ZONISAMIDE [Concomitant]
     Active Substance: ZONISAMIDE
  11. ZONISAMIDE [Concomitant]
     Active Substance: ZONISAMIDE

REACTIONS (1)
  - Sedation complication [None]
